FAERS Safety Report 7985654-5 (Version None)
Quarter: 2011Q4

REPORT INFORMATION
  Report Type: 
  Country: None (occurrence: None)
  Receive Date: 20111216
  Receipt Date: 20111213
  Transmission Date: 20120403
  Serious: Yes (Death, Hospitalization)
  Sender: FDA-Public Use
  Company Number: FR-BRISTOL-MYERS SQUIBB COMPANY-15935158

PATIENT
  Age: 82 Year
  Sex: Male

DRUGS (5)
  1. BICNU [Suspect]
     Indication: MYCOSIS FUNGOIDES
     Dosage: 1DF=0.4286 DOSE UNITS NOS
     Route: 061
     Dates: start: 20110704, end: 20110713
  2. DIPROSONE [Suspect]
     Dosage: DIPROSONE 0.025% CREAM
     Route: 061
     Dates: end: 20110713
  3. CORTICOSTEROID [Concomitant]
     Indication: PSORIASIS
     Route: 061
     Dates: start: 20090101
  4. CLOBETASOL PROPIONATE [Suspect]
     Dosage: DERMOVAL 0.05% CREAM, 1DF=0.5714 UNITS NOS
     Route: 061
     Dates: end: 20110712
  5. METHOTREXATE SODIUM [Suspect]
     Indication: MYCOSIS FUNGOIDES
     Dosage: INJ 2.8571MG
     Route: 051
     Dates: start: 20110704, end: 20110711

REACTIONS (3)
  - LYMPHOPENIA [None]
  - NECROTISING FASCIITIS [None]
  - STREPTOCOCCAL BACTERAEMIA [None]
